FAERS Safety Report 7270354-X (Version None)
Quarter: 2011Q1

REPORT INFORMATION
  Report Type: 
  Country: None (occurrence: None)
  Receive Date: 20110202
  Receipt Date: 20110128
  Transmission Date: 20110831
  Serious: Yes (Hospitalization)
  Sender: FDA-Public Use
  Company Number: BR-US-EMD SERONO, INC.-7039166

PATIENT
  Sex: Female

DRUGS (8)
  1. REBIF [Suspect]
     Indication: RELAPSING-REMITTING MULTIPLE SCLEROSIS
     Dates: start: 20101214, end: 20110103
  2. DIAZEPAM [Concomitant]
  3. AMITRIPTYLINE HCL [Concomitant]
  4. BACLOFEN [Concomitant]
  5. ARTROLIV [Concomitant]
  6. OSCAL-D [Concomitant]
  7. MACRODANTIN [Concomitant]
  8. NAPROXEN [Concomitant]

REACTIONS (4)
  - MULTIPLE SCLEROSIS RELAPSE [None]
  - MUSCULAR WEAKNESS [None]
  - CENTRAL NERVOUS SYSTEM LESION [None]
  - ABASIA [None]
